FAERS Safety Report 10164310 (Version 1)
Quarter: 2014Q2

REPORT INFORMATION
  Report Type: Spontaneous
  Country: US (occurrence: US)
  Receive Date: 20140510
  Receipt Date: 20140510
  Transmission Date: 20141212
  Serious: No
  Sender: FDA-Public Use
  Company Number: US-BRISTOL-MYERS SQUIBB COMPANY-20036810

PATIENT
  Age: 48 Year
  Sex: Female
  Weight: 91.15 kg

DRUGS (4)
  1. BYDUREON [Suspect]
  2. WARFARIN [Concomitant]
  3. JANUVIA [Concomitant]
  4. GLIPIZIDE [Concomitant]

REACTIONS (2)
  - Injection site extravasation [Unknown]
  - Injection site haemorrhage [Unknown]
